APPROVED DRUG PRODUCT: SODIUM BICARBONATE IN PLASTIC CONTAINER
Active Ingredient: SODIUM BICARBONATE
Strength: 50MEQ/50ML (1MEQ/ML) **Federal Register determination that product was not discontinued or withdrawn for safety or effectiveness reasons**
Dosage Form/Route: SOLUTION;INTRAVENOUS
Application: N019443 | Product #002
Applicant: ABBOTT LABORATORIES PHARMACEUTICAL PRODUCTS DIV
Approved: Jun 3, 1986 | RLD: Yes | RS: No | Type: DISCN